FAERS Safety Report 6317473-X (Version None)
Quarter: 2009Q3

REPORT INFORMATION
  Report Type: 
  Country: None (occurrence: None)
  Receive Date: 20090821
  Receipt Date: 20070509
  Transmission Date: 20100115
  Serious: Yes (Hospitalization, Other)
  Sender: FDA-Public Use
  Company Number: US-ASTRAZENECA-2006UW11874

PATIENT
  Age: 22893 Day
  Sex: Female
  Weight: 117.9 kg

DRUGS (48)
  1. SEROQUEL [Suspect]
     Indication: SCHIZOPHRENIA
     Route: 048
     Dates: start: 20050101
  2. SEROQUEL [Suspect]
     Indication: DEPRESSION
     Route: 048
     Dates: start: 20050101
  3. SEROQUEL [Suspect]
     Indication: BIPOLAR DISORDER
     Route: 048
     Dates: start: 20050101
  4. SEROQUEL [Suspect]
     Dosage: 100MG-300MG
     Route: 048
     Dates: start: 20050802
  5. SEROQUEL [Suspect]
     Dosage: 100MG-300MG
     Route: 048
     Dates: start: 20050802
  6. SEROQUEL [Suspect]
     Dosage: 100MG-300MG
     Route: 048
     Dates: start: 20050802
  7. SEROQUEL [Suspect]
     Route: 048
     Dates: start: 20050817, end: 20061101
  8. SEROQUEL [Suspect]
     Route: 048
     Dates: start: 20050817, end: 20061101
  9. SEROQUEL [Suspect]
     Route: 048
     Dates: start: 20050817, end: 20061101
  10. SEROQUEL [Suspect]
     Route: 048
     Dates: start: 20060701, end: 20061101
  11. SEROQUEL [Suspect]
     Route: 048
     Dates: start: 20060701, end: 20061101
  12. SEROQUEL [Suspect]
     Route: 048
     Dates: start: 20060701, end: 20061101
  13. ZYPREXA [Suspect]
     Route: 048
     Dates: start: 19991008, end: 20001021
  14. ZYPREXA [Suspect]
     Route: 048
     Dates: start: 19991103, end: 19991116
  15. ZYPREXA [Suspect]
     Route: 048
     Dates: start: 19991203, end: 20001216
  16. ZYPREXA [Suspect]
     Route: 048
     Dates: start: 20000510, end: 20010524
  17. ZYPREXA [Suspect]
     Route: 048
     Dates: start: 20000803, end: 20010817
  18. ZYPREXA [Suspect]
     Route: 048
     Dates: start: 20050101
  19. SOLIAN [Concomitant]
     Dates: start: 20061218
  20. TRAZADONE/ DESYREL [Concomitant]
     Indication: INSOMNIA
     Route: 048
     Dates: start: 20000803, end: 20010817
  21. TRAZADONE/ DESYREL [Concomitant]
     Route: 048
     Dates: start: 20000510, end: 20010524
  22. TRAZADONE/ DESYREL [Concomitant]
     Route: 048
     Dates: start: 20050101
  23. TRAZADONE/ DESYREL [Concomitant]
     Dates: start: 20061218
  24. TRAZADONE/ DESYREL [Concomitant]
     Route: 048
     Dates: start: 20050802
  25. ZOLOFT [Concomitant]
     Dates: start: 20060101, end: 20070101
  26. ZOLOFT [Concomitant]
     Route: 048
     Dates: start: 20050802
  27. GLUCOPHAGE [Concomitant]
  28. NORTRIPTYLINE HCL [Concomitant]
     Route: 048
     Dates: start: 20000803, end: 20010817
  29. METOCLOPRAMIDE [Concomitant]
     Route: 042
     Dates: start: 20000725, end: 20000727
  30. CONJUGATED ESTROGENS [Concomitant]
     Route: 048
     Dates: start: 19991203, end: 19991205
  31. CLONAZEPAM [Concomitant]
     Route: 048
     Dates: start: 19991203, end: 19991222
  32. FLUOXETINE [Concomitant]
     Route: 048
     Dates: start: 19991103, end: 20001116
  33. FUROSEMIDE [Concomitant]
     Route: 048
     Dates: start: 19990714, end: 20000727
  34. PLAVIX [Concomitant]
     Route: 048
     Dates: start: 20051001
  35. PLAVIX [Concomitant]
     Dates: start: 20051010
  36. SYNTHROID [Concomitant]
  37. SYNTHROID [Concomitant]
     Dates: start: 20051010
  38. PRINIVIL [Concomitant]
  39. PRINIVIL [Concomitant]
     Dates: start: 20051010
  40. FLAGYL [Concomitant]
     Dates: start: 20051010
  41. FLAGYL [Concomitant]
     Dates: end: 20051023
  42. CIPRO [Concomitant]
     Dates: end: 20051023
  43. PROTONIX [Concomitant]
     Dates: start: 20051010
  44. PROTONIX [Concomitant]
  45. ZOCOR [Concomitant]
     Dates: start: 20051010
  46. ZOCOR [Concomitant]
  47. LORTAB [Concomitant]
     Dosage: AS REQUIRED
  48. RISPERDAL [Concomitant]
     Dates: start: 20050101

REACTIONS (6)
  - ASTHENIA [None]
  - CEREBROVASCULAR ACCIDENT [None]
  - DIABETES MELLITUS [None]
  - MYOCARDIAL INFARCTION [None]
  - PAIN [None]
  - PAIN IN EXTREMITY [None]
